FAERS Safety Report 13459882 (Version 1)
Quarter: 2017Q2

REPORT INFORMATION
  Report Type: Report from Study
  Country: US (occurrence: US)
  Receive Date: 20170420
  Receipt Date: 20170420
  Transmission Date: 20170830
  Serious: Yes (Hospitalization, Other)
  Sender: FDA-Public Use
  Company Number: US-GILEAD-2017-0253679

PATIENT
  Age: 78 Year
  Sex: Female
  Weight: 65.76 kg

DRUGS (18)
  1. AMBRISENTAN [Suspect]
     Active Substance: AMBRISENTAN
     Indication: PRODUCT USED FOR UNKNOWN INDICATION
     Dosage: 10 MG, QD
     Route: 048
  2. AMBIEN [Concomitant]
     Active Substance: ZOLPIDEM TARTRATE
  3. FISH OIL [Concomitant]
     Active Substance: FISH OIL
  4. KLOR-CON [Concomitant]
     Active Substance: POTASSIUM CHLORIDE
  5. DESONIDE. [Concomitant]
     Active Substance: DESONIDE
  6. VITAMIN D3 [Concomitant]
     Active Substance: CHOLECALCIFEROL
  7. REVATIO [Concomitant]
     Active Substance: SILDENAFIL CITRATE
  8. ATENOLOL. [Concomitant]
     Active Substance: ATENOLOL
  9. HYDROCHLOROTHIAZIDE. [Concomitant]
     Active Substance: HYDROCHLOROTHIAZIDE
  10. SYNTHROID [Concomitant]
     Active Substance: LEVOTHYROXINE SODIUM
  11. WELLBUTRIN [Concomitant]
     Active Substance: BUPROPION HYDROCHLORIDE
  12. FORTEO [Concomitant]
     Active Substance: TERIPARATIDE
  13. ASPRIN [Concomitant]
     Active Substance: ASPIRIN
  14. CALCIUM PLUS VITAMIN D [Concomitant]
     Active Substance: CALCIUM\VITAMIN D
  15. DEPO-MEDROL [Concomitant]
     Active Substance: METHYLPREDNISOLONE ACETATE
  16. PROTONIX                           /00661201/ [Concomitant]
     Active Substance: OMEPRAZOLE
  17. DIAZEPAM. [Concomitant]
     Active Substance: DIAZEPAM
  18. CINNAMON                           /01647501/ [Concomitant]
     Active Substance: CINNAMON

REACTIONS (3)
  - Toe operation [Unknown]
  - Pain [Unknown]
  - Foot deformity [Unknown]

NARRATIVE: CASE EVENT DATE: 20170104
